FAERS Safety Report 20001590 (Version 1)
Quarter: 2021Q4

REPORT INFORMATION
  Report Type: Spontaneous
  Country: MY (occurrence: MY)
  Receive Date: 20211027
  Receipt Date: 20211027
  Transmission Date: 20220303
  Serious: Yes (Other)
  Sender: FDA-Public Use
  Company Number: MY-ABBVIE-21K-101-4135197-00

PATIENT
  Age: 23 Year
  Sex: Male

DRUGS (1)
  1. EPILIM [Suspect]
     Active Substance: VALPROATE SODIUM
     Indication: Epilepsy
     Route: 048

REACTIONS (4)
  - Scab [Recovering/Resolving]
  - Genital ulceration [Recovering/Resolving]
  - Mouth ulceration [Recovering/Resolving]
  - Rash maculo-papular [Recovering/Resolving]
